FAERS Safety Report 6260948-2 (Version None)
Quarter: 2009Q3

REPORT INFORMATION
  Report Type: 
  Country: None (occurrence: None)
  Receive Date: 20090709
  Receipt Date: 20090701
  Transmission Date: 20100115
  Serious: Yes (Hospitalization, Other)
  Sender: FDA-Public Use
  Company Number: TW-BAYER-200924480GPV

PATIENT
  Age: 29 Year
  Sex: Male
  Weight: 50 kg

DRUGS (6)
  1. BETAFERON [Suspect]
     Indication: MULTIPLE SCLEROSIS
     Route: 058
     Dates: start: 20090120
  2. BETAFERON [Interacting]
     Dosage: 1/2 REDUCTION
     Route: 058
     Dates: start: 20090618, end: 20090623
  3. BETAFERON [Interacting]
     Route: 058
     Dates: start: 20090626
  4. NOVOMIX 30 [Interacting]
     Indication: DIABETES MELLITUS
     Dosage: TOTAL DAILY DOSE: 600 IU
     Route: 058
     Dates: start: 20040118
  5. METHYLCOBALAMINE/ VITAMIN B12 [Concomitant]
     Indication: MULTIPLE SCLEROSIS
     Dosage: TOTAL DAILY DOSE: 15 MG
     Route: 048
     Dates: start: 20090217
  6. SANYL/ NICAMETATE [Concomitant]
     Indication: MULTIPLE SCLEROSIS
     Dosage: TOTAL DAILY DOSE: 150 MG
     Route: 048
     Dates: start: 20090217

REACTIONS (5)
  - ALANINE AMINOTRANSFERASE INCREASED [None]
  - ASPARTATE AMINOTRANSFERASE INCREASED [None]
  - BLOOD ALKALINE PHOSPHATASE INCREASED [None]
  - FATIGUE [None]
  - JAUNDICE [None]
